FAERS Safety Report 7406835-5 (Version None)
Quarter: 2011Q2

REPORT INFORMATION
  Report Type: 
  Country: None (occurrence: None)
  Receive Date: 20110406
  Receipt Date: 20110406
  Transmission Date: 20111010
  Serious: Yes (Hospitalization)
  Sender: FDA-Public Use
  Company Number: None

PATIENT
  Sex: Male
  Weight: 76 kg

DRUGS (4)
  1. BEVACIZUMAB (RHUMAB VEGF) [Suspect]
     Dosage: 380 MG
     Dates: end: 20110329
  2. FLUOROURACIL [Suspect]
     Dosage: 5376 MG
     Dates: end: 20110331
  3. LEUCOVORIN CALCIUM [Suspect]
     Dosage: 768 MG
     Dates: end: 20110329
  4. OXALIPLATIN (ELOXATIN) [Suspect]
     Dosage: 154 MG
     Dates: end: 20110329

REACTIONS (1)
  - ACUTE MYOCARDIAL INFARCTION [None]
